FAERS Safety Report 5738376-5 (Version None)
Quarter: 2008Q2

REPORT INFORMATION
  Report Type: 
  Country: None (occurrence: None)
  Receive Date: 20080514
  Receipt Date: 20080506
  Transmission Date: 20081010
  Serious: Yes (Other)
  Sender: FDA-Public Use
  Company Number: DE-ALLERGAN-0805105US

PATIENT
  Sex: Male
  Weight: 13 kg

DRUGS (2)
  1. BOTOX [Suspect]
     Indication: CEREBRAL PALSY
     Dosage: 30 UNITS/KG, SINGLE
     Route: 030
     Dates: start: 20080201, end: 20080201
  2. BOTOX [Suspect]
     Indication: PARESIS

REACTIONS (5)
  - CONSTIPATION [None]
  - EYELID PTOSIS [None]
  - HYPOKINESIA [None]
  - MUSCULAR WEAKNESS [None]
  - SLEEP DISORDER [None]
